FAERS Safety Report 4452469-4 (Version None)
Quarter: 2004Q3

REPORT INFORMATION
  Report Type: 
  Country: None (occurrence: None)
  Receive Date: 20040916
  Receipt Date: 20040831
  Transmission Date: 20050211
  Serious: Yes (Disabling, Other)
  Sender: FDA-Public Use
  Company Number: 2004-03856

PATIENT
  Age: 55 Year
  Sex: Female

DRUGS (1)
  1. QUININE SULFATE (WATSON LABORATORIES) (QUININE SULFATE) [Suspect]
     Indication: INTENTIONAL OVERDOSE

REACTIONS (2)
  - BLINDNESS [None]
  - INTENTIONAL OVERDOSE [None]
